FAERS Safety Report 8130989-9 (Version None)
Quarter: 2012Q1

REPORT INFORMATION
  Report Type: 
  Country: None (occurrence: None)
  Receive Date: 20120208
  Receipt Date: 20120208
  Transmission Date: 20120608
  Serious: Yes (Hospitalization)
  Sender: FDA-Public Use
  Company Number: None

PATIENT
  Age: 57 Year
  Sex: Female

DRUGS (1)
  1. ATENOLOL [Suspect]
     Indication: PALPITATIONS
     Dosage: ORALLY ONCE DAILY (TAKING FOR MANY YEARS)
     Route: 048

REACTIONS (4)
  - DYSPNOEA [None]
  - HYPERTENSION [None]
  - BUNDLE BRANCH BLOCK [None]
  - PALPITATIONS [None]
